FAERS Safety Report 7905435-8 (Version None)
Quarter: 2011Q4

REPORT INFORMATION
  Report Type: 
  Country: None (occurrence: None)
  Receive Date: 20111109
  Receipt Date: 20111027
  Transmission Date: 20120403
  Serious: Yes (Disabling)
  Sender: FDA-Public Use
  Company Number: GB-MYLANLABS-2011S1015851

PATIENT
  Age: 57 Year
  Sex: Male
  Weight: 80 kg

DRUGS (2)
  1. FINASTERIDE [Suspect]
     Indication: BENIGN PROSTATIC HYPERPLASIA
     Route: 048
     Dates: start: 20090101, end: 20110301
  2. TAMSULOSIN HCL [Concomitant]
     Indication: PRODUCT USED FOR UNKNOWN INDICATION

REACTIONS (7)
  - FATIGUE [None]
  - PSYCHIATRIC SYMPTOM [None]
  - SELF ESTEEM DECREASED [None]
  - ANHEDONIA [None]
  - DISTURBANCE IN ATTENTION [None]
  - BREAST DISORDER MALE [None]
  - DEPRESSION [None]
